FAERS Safety Report 6768034-X (Version None)
Quarter: 2010Q2

REPORT INFORMATION
  Report Type: 
  Country: None (occurrence: None)
  Receive Date: 20100614
  Receipt Date: 20100607
  Transmission Date: 20101027
  Serious: Yes (Hospitalization)
  Sender: FDA-Public Use
  Company Number: B0652608A

PATIENT
  Age: 69 Year
  Sex: Female

DRUGS (4)
  1. MELPHALAN HYDROCHLORIDE [Suspect]
     Indication: MULTIPLE MYELOMA
     Dosage: 22MG PER DAY
     Route: 065
     Dates: start: 20100326, end: 20100329
  2. THALIDOMIDE [Suspect]
     Indication: MULTIPLE MYELOMA
     Route: 048
     Dates: start: 20100326
  3. PREDNISONE [Suspect]
     Indication: MULTIPLE MYELOMA
     Dosage: 170MG PER DAY
     Route: 065
     Dates: start: 20100326, end: 20100329
  4. CLEXANE [Concomitant]
     Route: 058
     Dates: start: 20100326

REACTIONS (2)
  - FATIGUE [None]
  - PNEUMONIA [None]
